FAERS Safety Report 9917608 (Version 3)
Quarter: 2014Q2

REPORT INFORMATION
  Report Type: Spontaneous
  Country: US (occurrence: US)
  Receive Date: 20140221
  Receipt Date: 20140411
  Transmission Date: 20141212
  Serious: No
  Sender: FDA-Public Use
  Company Number: US-TEVA-464496USA

PATIENT
  Age: 26 Year
  Sex: Female
  Weight: 56.3 kg

DRUGS (2)
  1. PLAN B ONE-STEP [Suspect]
     Indication: POST COITAL CONTRACEPTION
     Dosage: 1.5 MILLIGRAM DAILY;
     Route: 048
     Dates: start: 20140208, end: 20140208
  2. INVEGA SUSTENNA (PALIPERIDONE) [Interacting]
     Indication: SCHIZOPHRENIA
     Dosage: MONTHLY

REACTIONS (8)
  - Hot flush [Recovered/Resolved]
  - Abdominal distension [Recovered/Resolved]
  - Feeling hot [Recovered/Resolved]
  - Fluid retention [Not Recovered/Not Resolved]
  - Headache [Recovered/Resolved]
  - Nausea [Recovered/Resolved]
  - Menstruation irregular [Recovered/Resolved]
  - Drug interaction [Recovered/Resolved]
